FAERS Safety Report 6142259-9 (Version None)
Quarter: 2009Q2

REPORT INFORMATION
  Report Type: 
  Country: None (occurrence: None)
  Receive Date: 20090401
  Receipt Date: 20090401
  Transmission Date: 20091009
  Serious: Yes (Other)
  Sender: FDA-Public Use
  Company Number: None

PATIENT
  Age: 64 Year
  Sex: Female
  Weight: 78.9259 kg

DRUGS (1)
  1. ZITHROMAX [Suspect]
     Indication: LYME DISEASE
     Dosage: 250 MG BID ORAL
     Route: 048

REACTIONS (1)
  - DIARRHOEA [None]
